FAERS Safety Report 6034876-1 (Version None)
Quarter: 2009Q1

REPORT INFORMATION
  Report Type: 
  Country: None (occurrence: None)
  Receive Date: 20090108
  Receipt Date: 20090108
  Transmission Date: 20090719
  Serious: Yes (Other)
  Sender: FDA-Public Use
  Company Number: None

PATIENT
  Age: 44 Year
  Sex: Female
  Weight: 65.7716 kg

DRUGS (2)
  1. LEVAQUIN [Suspect]
     Indication: BACTERIAL INFECTION
     Dosage: 500 MG ONE PILL DAILY PO
     Route: 048
     Dates: start: 20081205, end: 20081225
  2. LEVAQUIN [Suspect]
     Indication: SINUSITIS
     Dosage: 500 MG ONE PILL DAILY PO
     Route: 048
     Dates: start: 20081205, end: 20081225

REACTIONS (2)
  - MUSCULOSKELETAL STIFFNESS [None]
  - PAIN [None]
